FAERS Safety Report 7350231-6 (Version None)
Quarter: 2011Q1

REPORT INFORMATION
  Report Type: 
  Country: None (occurrence: None)
  Receive Date: 20110314
  Receipt Date: 20110304
  Transmission Date: 20110831
  Serious: Yes (Other)
  Sender: FDA-Public Use
  Company Number: US-ASTRAZENECA-2010SE45809

PATIENT
  Age: 55 Year
  Sex: Female

DRUGS (3)
  1. CRESTOR [Suspect]
     Route: 048
  2. TOPROL-XL [Suspect]
     Dosage: 50 MG HALF IN THE MORNING AND HALF AT NIGHT
     Route: 048
  3. NEXIUM [Suspect]
     Route: 048

REACTIONS (7)
  - UPPER LIMB FRACTURE [None]
  - GASTROOESOPHAGEAL REFLUX DISEASE [None]
  - MUSCLE HAEMORRHAGE [None]
  - WRONG TECHNIQUE IN DRUG USAGE PROCESS [None]
  - FALL [None]
  - MYOCARDIAL INFARCTION [None]
  - DRUG DOSE OMISSION [None]
